FAERS Safety Report 6341864-4 (Version None)
Quarter: 2009Q3

REPORT INFORMATION
  Report Type: 
  Country: None (occurrence: None)
  Receive Date: 20090902
  Receipt Date: 20090326
  Transmission Date: 20100115
  Serious: Yes (Hospitalization)
  Sender: FDA-Public Use
  Company Number: CIP09000782

PATIENT
  Sex: Male

DRUGS (1)
  1. ASACOL [Suspect]
     Indication: COLITIS ULCERATIVE
     Dosage: 400 MG, ORAL
     Route: 048
     Dates: start: 20090301, end: 20090324

REACTIONS (4)
  - ARTHRALGIA [None]
  - PAIN [None]
  - PYREXIA [None]
  - RASH [None]
